FAERS Safety Report 12543514 (Version 1)
Quarter: 2016Q3

REPORT INFORMATION
  Report Type: Spontaneous
  Country: US (occurrence: None)
  Receive Date: 20160708
  Receipt Date: 20160708
  Transmission Date: 20161109
  Serious: Yes (Life-Threatening)
  Sender: FDA-Public Use
  Company Number: None

PATIENT
  Age: 67 Year
  Sex: Female
  Weight: 82.56 kg

DRUGS (1)
  1. RASBURICASE, 16 MG SANOFI AVENTIS [Suspect]
     Active Substance: RASBURICASE
     Indication: TUMOUR LYSIS SYNDROME
     Route: 040
     Dates: start: 20160701, end: 20160701

REACTIONS (3)
  - Methaemoglobinaemia [None]
  - Lethargy [None]
  - Hypoxia [None]

NARRATIVE: CASE EVENT DATE: 20160702
